FAERS Safety Report 15879546 (Version 1)
Quarter: 2019Q1

REPORT INFORMATION
  Report Type: Spontaneous
  Country: US (occurrence: US)
  Receive Date: 20190104
  Receipt Date: 20190104
  Transmission Date: 20190417
  Serious: No
  Sender: FDA-Public Use
  Company Number: None

PATIENT
  Age: 19 Year
  Sex: Female

DRUGS (1)
  1. ENBREL [Suspect]
     Active Substance: ETANERCEPT
     Indication: JUVENILE IDIOPATHIC ARTHRITIS
     Route: 058
     Dates: start: 201808, end: 201812

REACTIONS (4)
  - Vision blurred [None]
  - Pharyngeal oedema [None]
  - Drug hypersensitivity [None]
  - Dizziness [None]

NARRATIVE: CASE EVENT DATE: 201812
